FAERS Safety Report 14762540 (Version 1)
Quarter: 2018Q2

REPORT INFORMATION
  Report Type: Spontaneous
  Country: US (occurrence: US)
  Receive Date: 20180416
  Receipt Date: 20180416
  Transmission Date: 20180711
  Serious: Yes (Hospitalization, Other)
  Sender: FDA-Public Use
  Company Number: US-IBIGEN-2018.03858

PATIENT
  Age: 24 Year
  Sex: Female

DRUGS (6)
  1. PIPERACILLIN AND TAZOBACTAM [Suspect]
     Active Substance: PIPERACILLIN SODIUM\TAZOBACTAM SODIUM
  2. GANCICLOVIR. [Suspect]
     Active Substance: GANCICLOVIR
  3. CIPROFLOXACIN. [Suspect]
     Active Substance: CIPROFLOXACIN
  4. VORICONAZOLE. [Suspect]
     Active Substance: VORICONAZOLE
  5. MICAFUNGIN [Suspect]
     Active Substance: MICAFUNGIN
  6. LINEZOLID. [Suspect]
     Active Substance: LINEZOLID

REACTIONS (2)
  - Pathogen resistance [Unknown]
  - Cryptococcal cutaneous infection [Unknown]
